FAERS Safety Report 7236008-0 (Version None)
Quarter: 2011Q1

REPORT INFORMATION
  Report Type: 
  Country: None (occurrence: None)
  Receive Date: 20110120
  Receipt Date: 20110111
  Transmission Date: 20110831
  Serious: Yes (Other)
  Sender: FDA-Public Use
  Company Number: CA-JNJFOC-20110103168

PATIENT
  Sex: Female
  Weight: 52 kg

DRUGS (3)
  1. REMICADE [Suspect]
     Indication: CROHN'S DISEASE
     Dosage: 4TH INFUSION
     Route: 042
  2. REMICADE [Suspect]
     Route: 042
  3. IMURAN [Concomitant]
     Indication: PRODUCT USED FOR UNKNOWN INDICATION
     Dosage: 2.5 TABS

REACTIONS (5)
  - BLOOD PRESSURE INCREASED [None]
  - INFUSION RELATED REACTION [None]
  - PAIN [None]
  - HAEMORRHAGE [None]
  - THERAPEUTIC RESPONSE DECREASED [None]
